FAERS Safety Report 19987329 (Version 2)
Quarter: 2021Q4

REPORT INFORMATION
  Report Type: Spontaneous
  Country: US (occurrence: None)
  Receive Date: 20211023
  Receipt Date: 20211118
  Transmission Date: 20220303
  Serious: No
  Sender: FDA-Public Use
  Company Number: 2021A770435

PATIENT
  Sex: Female

DRUGS (1)
  1. FASENRA [Suspect]
     Active Substance: BENRALIZUMAB
     Indication: Eosinophil count increased
     Dosage: UNKNOWN
     Route: 058

REACTIONS (2)
  - Drug ineffective [Unknown]
  - Eosinophil count increased [Unknown]
